FAERS Safety Report 18394755 (Version 5)
Quarter: 2020Q4

REPORT INFORMATION
  Report Type: Spontaneous
  Country: US (occurrence: US)
  Receive Date: 20201016
  Receipt Date: 20201124
  Transmission Date: 20210114
  Serious: No
  Sender: FDA-Public Use
  Company Number: US-PFIZER INC-2020400850

PATIENT
  Age: 2 Year
  Sex: Male

DRUGS (1)
  1. EUCRISA [Suspect]
     Active Substance: CRISABOROLE
     Indication: ECZEMA
     Dosage: UNK, AS NEEDED (APPLY A THIN AMOUNT TO ALL AREAS OF ECZEMA)
     Route: 061

REACTIONS (4)
  - Off label use [Unknown]
  - Rash [Unknown]
  - Pruritus [Unknown]
  - Scab [Unknown]
